FAERS Safety Report 6194938-5 (Version None)
Quarter: 2009Q2

REPORT INFORMATION
  Report Type: 
  Country: None (occurrence: None)
  Receive Date: 20090519
  Receipt Date: 20090504
  Transmission Date: 20091009
  Serious: Yes (Hospitalization)
  Sender: FDA-Public Use
  Company Number: CA-GENENTECH-281846

PATIENT
  Sex: Female

DRUGS (1)
  1. RITUXIMAB [Suspect]
     Indication: RHEUMATOID ARTHRITIS
     Dosage: 1000 MG, UNK
     Route: 042
     Dates: start: 20080501, end: 20080101

REACTIONS (14)
  - CANDIDIASIS [None]
  - CARDIAC FAILURE CONGESTIVE [None]
  - CUSHINGOID [None]
  - FATIGUE [None]
  - HEPATIC CYST [None]
  - HEPATOMEGALY [None]
  - NAUSEA [None]
  - OEDEMA PERIPHERAL [None]
  - PAIN [None]
  - PNEUMONIA [None]
  - PYREXIA [None]
  - RENAL CYST [None]
  - URINARY TRACT INFECTION [None]
  - VOMITING [None]
